FAERS Safety Report 9547773 (Version 2)
Quarter: 2013Q4

REPORT INFORMATION
  Report Type: Spontaneous
  Country: US (occurrence: None)
  Receive Date: 20130711
  Receipt Date: 20131217
  Transmission Date: 20140711
  Serious: No
  Sender: FDA-Public Use
  Company Number: PHEH2013US010995

PATIENT
  Sex: Male

DRUGS (1)
  1. SIGNIFOR (PASIREOTIDE) INJECTION [Suspect]
     Indication: CUSHING^S SYNDROME
     Dosage: 0.6 MG, BID

REACTIONS (1)
  - Injection site bruising [None]
